FAERS Safety Report 9187999 (Version 21)
Quarter: 2014Q1

REPORT INFORMATION
  Report Type: Spontaneous
  Country: US (occurrence: US)
  Receive Date: 20130325
  Receipt Date: 20140303
  Transmission Date: 20141002
  Serious: Yes (Death, Hospitalization, Other)
  Sender: FDA-Public Use
  Company Number: US-GLAXOSMITHKLINE-A1002740A

PATIENT
  Age: 23 Year
  Sex: Male
  Weight: 80.2 kg

DRUGS (7)
  1. FLOLAN [Suspect]
     Indication: PULMONARY ARTERIAL HYPERTENSION
     Dosage: 68.5NGKM CONTINUOUS
     Route: 042
     Dates: start: 19991007
  2. CIALIS [Suspect]
     Indication: PULMONARY ARTERIAL HYPERTENSION
     Route: 065
  3. BOSENTAN [Concomitant]
     Dosage: 14MG TWICE PER DAY
     Route: 048
  4. DIGOXIN [Concomitant]
     Dosage: .125MG PER DAY
     Route: 048
  5. COUMADIN [Concomitant]
     Dosage: 8MG PER DAY
     Route: 048
  6. SILDENAFIL [Concomitant]
     Dosage: 10MG PER DAY
     Route: 048
  7. TRACLEER [Concomitant]

REACTIONS (14)
  - Pulmonary hypertension [Not Recovered/Not Resolved]
  - Cardiac failure [Not Recovered/Not Resolved]
  - Investigation [Not Recovered/Not Resolved]
  - Device infusion issue [Recovered/Resolved]
  - International normalised ratio increased [Recovered/Resolved]
  - Viral upper respiratory tract infection [Recovered/Resolved]
  - Platelet count decreased [Recovering/Resolving]
  - Nasopharyngitis [Recovered/Resolved]
  - Blood test abnormal [Recovered/Resolved]
  - Epistaxis [Recovered/Resolved]
  - Headache [Recovered/Resolved]
  - Hospice care [Unknown]
  - Weight decreased [Unknown]
  - Right ventricular failure [Fatal]
